FAERS Safety Report 5176807-2 (Version None)
Quarter: 2006Q4

REPORT INFORMATION
  Report Type: 
  Country: None (occurrence: None)
  Receive Date: 20061218
  Receipt Date: 20061108
  Transmission Date: 20070319
  Serious: Yes (Other)
  Sender: FDA-Public Use
  Company Number: PHNU2006DE03693

PATIENT
  Age: 66 Year
  Sex: Female
  Weight: 70 kg

DRUGS (2)
  1. SANDIMMUNE [Suspect]
     Indication: RENAL TRANSPLANT
     Dosage: 25 MG, QD
     Dates: start: 19910101
  2. MYFORTIC [Concomitant]
     Indication: RENAL TRANSPLANT
     Route: 048
     Dates: start: 20050101

REACTIONS (7)
  - ALOPECIA [None]
  - ATRIAL FIBRILLATION [None]
  - BASAL CELL CARCINOMA [None]
  - BREAST CANCER [None]
  - GINGIVAL HYPERPLASIA [None]
  - HYPERTENSION [None]
  - OVARIAN NEOPLASM [None]
